FAERS Safety Report 17516325 (Version 1)
Quarter: 2020Q1

REPORT INFORMATION
  Report Type: Spontaneous
  Country: US (occurrence: US)
  Receive Date: 20200227
  Receipt Date: 20200227
  Transmission Date: 20200409
  Serious: No
  Sender: FDA-Public Use
  Company Number: None

PATIENT
  Age: 41 Year
  Sex: Female

DRUGS (1)
  1. SOLOSEC [Suspect]
     Active Substance: SECNIDAZOLE
     Route: 048
     Dates: start: 20190531

REACTIONS (2)
  - Pharyngeal disorder [None]
  - Nausea [None]

NARRATIVE: CASE EVENT DATE: 20190531
